FAERS Safety Report 17076795 (Version 1)
Quarter: 2019Q4

REPORT INFORMATION
  Report Type: Spontaneous
  Country: CA (occurrence: CA)
  Receive Date: 20191126
  Receipt Date: 20191126
  Transmission Date: 20200122
  Serious: Yes (Life-Threatening)
  Sender: FDA-Public Use
  Company Number: CA-TEVA-2019-CA-1141244

PATIENT
  Age: 59 Year
  Sex: Female

DRUGS (1)
  1. COPAXONE [Suspect]
     Active Substance: GLATIRAMER ACETATE
     Indication: MULTIPLE SCLEROSIS
     Route: 065

REACTIONS (15)
  - Dizziness postural [Recovered/Resolved]
  - Erythema [Recovered/Resolved]
  - Dyspnoea [Recovered/Resolved]
  - Injection site pruritus [Recovered/Resolved]
  - Pharyngeal swelling [Recovered/Resolved]
  - Anxiety [Recovered/Resolved]
  - Injection site plaque [Recovered/Resolved]
  - Swelling face [Recovered/Resolved]
  - Dysphagia [Recovered/Resolved]
  - Injection site erythema [Recovered/Resolved]
  - Feeling hot [Recovered/Resolved]
  - Sense of oppression [Recovered/Resolved]
  - Chest discomfort [Recovered/Resolved]
  - Injection site pain [Recovered/Resolved]
  - Nausea [Recovered/Resolved]
